FAERS Safety Report 7903004-7 (Version None)
Quarter: 2011Q4

REPORT INFORMATION
  Report Type: 
  Country: None (occurrence: None)
  Receive Date: 20111109
  Receipt Date: 20111027
  Transmission Date: 20120403
  Serious: Yes (Hospitalization, Other)
  Sender: FDA-Public Use
  Company Number: IT-ELI_LILLY_AND_COMPANY-IT201110007763

PATIENT
  Sex: Female

DRUGS (2)
  1. FORTEO [Suspect]
     Dosage: UNK, QOD
  2. FORTEO [Suspect]
     Dosage: UNK
     Dates: start: 20100101, end: 20100101

REACTIONS (2)
  - CARDIAC FAILURE [None]
  - DRUG DOSE OMISSION [None]
